FAERS Safety Report 9099205 (Version 1)
Quarter: 2013Q1

REPORT INFORMATION
  Report Type: Spontaneous
  Country: US (occurrence: US)
  Receive Date: 20130214
  Receipt Date: 20130214
  Transmission Date: 20140127
  Serious: No
  Sender: FDA-Public Use
  Company Number: US-COVIDIEN/TYCO HEALTHCARE/MALLINCKRODT-T201204329

PATIENT
  Age: 61 Year
  Sex: Male

DRUGS (3)
  1. FENTANYL TRANSDERMAL SYSTEM [Suspect]
     Indication: CANCER PAIN
     Dosage: 100 UG/HR, 1 PATCH Q3 DAYS
     Route: 062
     Dates: start: 2012
  2. MORPHINE [Concomitant]
     Indication: CANCER PAIN
     Dosage: EXTENDED RELEASE: 15 MG, BID
     Dates: start: 201209
  3. MORPHINE [Concomitant]
     Indication: BREAKTHROUGH PAIN
     Dosage: IMMEDIATE RELEASE: 15 MG PRN
     Route: 048

REACTIONS (2)
  - Breakthrough pain [Unknown]
  - Drug effect decreased [Not Recovered/Not Resolved]
